FAERS Safety Report 9419934 (Version 1)
Quarter: 2013Q3

REPORT INFORMATION
  Report Type: Spontaneous
  Country: GB (occurrence: GB)
  Receive Date: 20130725
  Receipt Date: 20130725
  Transmission Date: 20140515
  Serious: Yes (Other)
  Sender: FDA-Public Use
  Company Number: GB-ROCHE-1214558

PATIENT
  Sex: Female

DRUGS (10)
  1. MABTHERA [Suspect]
     Indication: RHEUMATOID ARTHRITIS
     Route: 065
     Dates: start: 200805
  2. MABTHERA [Suspect]
     Route: 065
     Dates: start: 200904
  3. MABTHERA [Suspect]
     Route: 065
     Dates: start: 200911
  4. MABTHERA [Suspect]
     Route: 065
     Dates: start: 201005
  5. MABTHERA [Suspect]
     Route: 065
     Dates: start: 201011
  6. MABTHERA [Suspect]
     Route: 065
     Dates: start: 201106
  7. MABTHERA [Suspect]
     Route: 065
     Dates: start: 201208
  8. ESOMEPRAZOLE [Concomitant]
     Indication: GASTROOESOPHAGEAL REFLUX DISEASE
     Route: 065
  9. BISOPROLOL [Concomitant]
     Indication: HYPERTENSION
  10. SINOMENINE [Concomitant]

REACTIONS (3)
  - Blood immunoglobulin G decreased [Unknown]
  - Bronchiectasis [Recovering/Resolving]
  - Immunodeficiency [Not Recovered/Not Resolved]
